FAERS Safety Report 6105240-1 (Version None)
Quarter: 2009Q1

REPORT INFORMATION
  Report Type: 
  Country: None (occurrence: None)
  Receive Date: 20090304
  Receipt Date: 20090304
  Transmission Date: 20090719
  Serious: No
  Sender: FDA-Public Use
  Company Number: None

PATIENT
  Age: 41 Year
  Sex: Male
  Weight: 128.82 kg

DRUGS (2)
  1. CIPROFLOXACIN [Suspect]
     Indication: EPIDIDYMITIS
     Dosage: 500 MG BID PO
     Route: 048
     Dates: start: 20090213, end: 20090224
  2. GLYBURIDE [Suspect]
     Indication: DIABETES MELLITUS
     Dosage: 5 MG AM PO
     Route: 048
     Dates: start: 20090217, end: 20090224

REACTIONS (3)
  - PRURITUS [None]
  - RASH [None]
  - URTICARIA [None]
